FAERS Safety Report 9364038 (Version 2)
Quarter: 2014Q1

REPORT INFORMATION
  Report Type: Report from Study
  Country: DE (occurrence: DE)
  Receive Date: 20130624
  Receipt Date: 20140124
  Transmission Date: 20141002
  Serious: Yes (Hospitalization)
  Sender: FDA-Public Use
  Company Number: DE-VERTEX PHARMACEUTICALS INC-2013-007329

PATIENT
  Age: 41 Year
  Sex: Male

DRUGS (9)
  1. VX-950 (TELAPREVIR) [Suspect]
     Indication: HEPATITIS C
     Dosage: 2250 MG, UNK
     Route: 048
     Dates: start: 20121012, end: 20130104
  2. PEGASYS [Suspect]
     Indication: HEPATITIS C
     Dosage: 180 ?G, QW
     Route: 058
     Dates: start: 20121012
  3. COPEGUS [Suspect]
     Indication: HEPATITIS C
     Dosage: 1200 MG, UNK
     Route: 048
     Dates: start: 20121012
  4. TETRAHYDROCANNABINOL [Suspect]
     Indication: PRODUCT USED FOR UNKNOWN INDICATION
  5. AMPHETAMINE [Suspect]
     Indication: PRODUCT USED FOR UNKNOWN INDICATION
  6. ETHYLAMPHETAMINE [Suspect]
     Indication: PRODUCT USED FOR UNKNOWN INDICATION
  7. BETA BLOCKER AGENT [Suspect]
     Indication: PRODUCT USED FOR UNKNOWN INDICATION
  8. LEPONEX [Concomitant]
     Indication: PSYCHOTIC DISORDER
     Dosage: 800 MG, UNK
     Route: 048
  9. SEROQUEL [Concomitant]
     Indication: PSYCHOTIC DISORDER
     Dosage: 600 MG, UNK
     Route: 048

REACTIONS (1)
  - Intentional overdose [Recovered/Resolved]
